FAERS Safety Report 25146760 (Version 2)
Quarter: 2025Q2

REPORT INFORMATION
  Report Type: Spontaneous
  Country: ES (occurrence: ES)
  Receive Date: 20250401
  Receipt Date: 20250417
  Transmission Date: 20250716
  Serious: Yes (Death, Other)
  Sender: TAKEDA
  Company Number: ES-TAKEDA-2024TUS073095

PATIENT

DRUGS (1)
  1. IDURSULFASE [Suspect]
     Active Substance: IDURSULFASE
     Indication: Product used for unknown indication

REACTIONS (5)
  - Respiratory failure [Fatal]
  - Weaning failure [Fatal]
  - Circumstance or information capable of leading to medication error [Unknown]
  - Product availability issue [Unknown]
  - Product distribution issue [Unknown]

NARRATIVE: CASE EVENT DATE: 20240715
